FAERS Safety Report 9580139 (Version 1)
Quarter: 2013Q2

REPORT INFORMATION
  Report Type: Spontaneous
  Country: CN (occurrence: None)
  Receive Date: 20130524
  Receipt Date: 20130524
  Transmission Date: 20140414
  Serious: Yes (Hospitalization)
  Sender: FDA-Public Use
  Company Number: JP-2011-11158

PATIENT
  Age: 63 Year
  Sex: Female

DRUGS (6)
  1. OPC-13013 (CILOSTAZOL) TABLET [Suspect]
     Indication: DIABETIC NEPHROPATHY
     Route: 048
     Dates: start: 20101113
  2. PROBUCOL [Suspect]
     Indication: DIABETIC NEPHROPATHY
     Route: 048
     Dates: start: 20101103
  3. GLIMEPIRIDE (GLIMEPIRIDE) [Concomitant]
  4. ACARBOSE (ACARBOSE) [Concomitant]
  5. SIMVASTATIN (SIMVASTATIN) [Concomitant]
  6. TELMISARTAN (TELMISARTAN) [Concomitant]

REACTIONS (1)
  - Urinary tract infection [None]
